FAERS Safety Report 19857247 (Version 3)
Quarter: 2021Q3

REPORT INFORMATION
  Report Type: Report from Study
  Country: None (occurrence: ES)
  Receive Date: 20210921
  Receipt Date: 20210928
  Transmission Date: 20211014
  Serious: Yes (Hospitalization)
  Sender: FDA-Public Use
  Company Number: ES-ABBVIE-21K-144-4083393-00

PATIENT
  Age: 73 Year
  Sex: Male
  Weight: 103 kg

DRUGS (2)
  1. DUODOPA [Suspect]
     Active Substance: CARBIDOPA\LEVODOPA
  2. DUODOPA [Suspect]
     Active Substance: CARBIDOPA\LEVODOPA
     Indication: PARKINSON^S DISEASE
     Route: 050
     Dates: start: 20200217

REACTIONS (7)
  - Enteritis [Recovering/Resolving]
  - Off label use [Unknown]
  - Duodenitis [Recovering/Resolving]
  - Embedded device [Recovered/Resolved]
  - Abdominal pain [Recovered/Resolved]
  - Device dislocation [Recovered/Resolved]
  - Ulcer haemorrhage [Unknown]

NARRATIVE: CASE EVENT DATE: 202109
